FAERS Safety Report 8031555-6 (Version None)
Quarter: 2012Q1

REPORT INFORMATION
  Report Type: 
  Country: None (occurrence: None)
  Receive Date: 20120109
  Receipt Date: 20120104
  Transmission Date: 20120608
  Serious: Yes (Other)
  Sender: FDA-Public Use
  Company Number: US-CELGENEUS-163-21880-11090736

PATIENT
  Sex: Female
  Weight: 86.26 kg

DRUGS (22)
  1. VALTREX [Concomitant]
     Route: 065
  2. FISH OIL [Concomitant]
     Route: 065
  3. VITAMIN B COMPLEX CAP [Concomitant]
     Route: 065
  4. SUPER B COMPLEX [Concomitant]
     Route: 065
  5. CALCIUM ACETATE [Concomitant]
     Route: 065
  6. NYSTATIN [Concomitant]
     Route: 065
  7. CITALOPRAM [Concomitant]
     Route: 065
  8. NORCO [Concomitant]
     Route: 065
  9. REVLIMID [Suspect]
     Dosage: 5 MILLIGRAM
     Route: 048
     Dates: start: 20110127
  10. PROBIOTICS [Concomitant]
     Route: 048
  11. REVLIMID [Suspect]
     Indication: MULTIPLE MYELOMA
     Dosage: 25 MILLIGRAM
     Route: 048
     Dates: start: 20100301
  12. FLONASE [Concomitant]
     Route: 065
  13. ALBUTEROL [Concomitant]
     Route: 065
  14. WELCHOL [Concomitant]
     Route: 065
  15. REVLIMID [Suspect]
     Dosage: 10 MILLIGRAM
     Route: 048
     Dates: start: 20110101
  16. ADVAIR DISKUS 100/50 [Concomitant]
     Route: 065
  17. ALPHA LIPOIC I-CARNITINE [Concomitant]
     Route: 065
  18. MULTI-VITAMINS [Concomitant]
     Route: 065
  19. CALCIUM + VITAMIN D [Concomitant]
     Route: 065
  20. L-CARNITINE [Concomitant]
     Route: 065
  21. ASPIRIN [Concomitant]
     Route: 065
  22. THEOPHYLLINE [Concomitant]
     Route: 065

REACTIONS (3)
  - NASOPHARYNGITIS [None]
  - DIARRHOEA [None]
  - ASTHMA [None]
